FAERS Safety Report 4796645-X (Version None)
Quarter: 2005Q4

REPORT INFORMATION
  Report Type: 
  Country: None (occurrence: None)
  Receive Date: 20051013
  Receipt Date: 20051005
  Transmission Date: 20060501
  Serious: Yes (Other)
  Sender: FDA-Public Use
  Company Number: GR-JNJFOC-20051000975

PATIENT
  Sex: Male

DRUGS (2)
  1. REMICADE [Suspect]
     Indication: CROHN'S DISEASE
     Dosage: WEEK 0, 2 AND 6 AND POTENTIALLY AS CONSERVATIVE TREATMENT EVERY 8 WEEKS
     Route: 042
  2. AZATHIOPRINE [Concomitant]
     Route: 065

REACTIONS (2)
  - ALOPECIA [None]
  - LEUKOPENIA [None]
